FAERS Safety Report 11204313 (Version 1)
Quarter: 2015Q2

REPORT INFORMATION
  Report Type: Report from Study
  Country: AU (occurrence: AU)
  Receive Date: 20150620
  Receipt Date: 20150620
  Transmission Date: 20150821
  Serious: Yes (Death)
  Sender: FDA-Public Use
  Company Number: PHHY2015AU074472

PATIENT
  Sex: Male

DRUGS (2)
  1. CLOZARIL [Suspect]
     Active Substance: CLOZAPINE
     Indication: SCHIZOPHRENIA
     Dosage: 600 OT, UNK
     Route: 048
     Dates: start: 19940928
  2. LAXETTES//PHENOLPHTHALEIN [Concomitant]
     Indication: CONSTIPATION
     Route: 065

REACTIONS (1)
  - Death [Fatal]
